FAERS Safety Report 4630391-8 (Version None)
Quarter: 2005Q2

REPORT INFORMATION
  Report Type: 
  Country: None (occurrence: None)
  Receive Date: 20050406
  Receipt Date: 20050321
  Transmission Date: 20051028
  Serious: Yes (Hospitalization)
  Sender: FDA-Public Use
  Company Number: USA050393750

PATIENT
  Age: 56 Year
  Sex: Female

DRUGS (1)
  1. FORTEO [Suspect]
     Indication: OSTEOPOROSIS
     Dates: start: 20030101

REACTIONS (4)
  - CELLULITIS [None]
  - FIBULA FRACTURE [None]
  - INCISION SITE COMPLICATION [None]
  - LOWER LIMB DEFORMITY [None]
